FAERS Safety Report 4599604-5 (Version None)
Quarter: 2005Q1

REPORT INFORMATION
  Report Type: 
  Country: None (occurrence: None)
  Receive Date: 20050303
  Receipt Date: 20050214
  Transmission Date: 20050727
  Serious: Yes (Hospitalization, Congenital Anomaly)
  Sender: FDA-Public Use
  Company Number: DSA_24882_2004

PATIENT
  Age: 36 Year
  Sex: Female

DRUGS (14)
  1. ATIVAN [Suspect]
     Indication: GENERALISED ANXIETY DISORDER
     Dosage: 0.5 MG QID
     Dates: start: 20031229, end: 20040101
  2. ATIVAN [Suspect]
     Indication: PANIC DISORDER
     Dosage: 0.5 MG QID
     Dates: start: 20031229, end: 20040101
  3. ATIVAN [Suspect]
     Indication: GENERALISED ANXIETY DISORDER
     Dosage: 1 MG QID
     Dates: start: 20040101, end: 20040101
  4. ATIVAN [Suspect]
     Indication: PANIC DISORDER
     Dosage: 1 MG QID
     Dates: start: 20040101, end: 20040101
  5. EFFEXOR XR [Suspect]
     Indication: MAJOR DEPRESSION
     Dosage: 450 MG QD
     Dates: start: 20021113
  6. REMERON [Suspect]
     Indication: MAJOR DEPRESSION
     Dosage: 45 MG QD
     Dates: start: 20031030, end: 20040222
  7. REMERON [Suspect]
     Indication: MAJOR DEPRESSION
     Dosage: 60 MG QHS
     Dates: start: 20040223
  8. ABILIFY [Suspect]
     Indication: MAJOR DEPRESSION
     Dosage: 15 MG QD
     Dates: start: 20031010, end: 20031209
  9. ABILIFY [Suspect]
     Indication: MAJOR DEPRESSION
     Dosage: 20 MG QHS
     Dates: start: 20031210, end: 20031229
  10. AMBIEN [Suspect]
     Indication: INSOMNIA
     Dosage: 20 MG QD
     Dates: start: 20031021, end: 20031229
  11. GABITRIL [Suspect]
     Indication: GENERALISED ANXIETY DISORDER
     Dosage: 12 MG QD
     Dates: start: 20030714, end: 20031229
  12. GABITRIL [Suspect]
     Indication: PANIC DISORDER
     Dosage: 12 MG QD
     Dates: start: 20030714, end: 20031229
  13. KLONOPIN [Suspect]
     Indication: GENERALISED ANXIETY DISORDER
     Dosage: 2 MG QD
     Dates: start: 20031210, end: 20031229
  14. KLONOPIN [Suspect]
     Indication: PANIC DISORDER
     Dosage: 2 MG QD
     Dates: start: 20031210, end: 20031229

REACTIONS (3)
  - CAESAREAN SECTION [None]
  - DRUG EXPOSURE DURING PREGNANCY [None]
  - PREGNANCY [None]
